FAERS Safety Report 25499162 (Version 1)
Quarter: 2025Q2

REPORT INFORMATION
  Report Type: Spontaneous
  Country: US (occurrence: None)
  Receive Date: 20250630
  Receipt Date: 20250630
  Transmission Date: 20250716
  Serious: Yes (Other)
  Sender: FDA-CTU
  Company Number: None

PATIENT
  Age: 87 Year
  Sex: Male
  Weight: 73.48 kg

DRUGS (1)
  1. KISUNLA [Suspect]
     Active Substance: DONANEMAB-AZBT
     Indication: Dementia Alzheimer^s type
     Dosage: FREQUENCY : MONTHLY;?
     Route: 042
     Dates: start: 20250514, end: 20250610

REACTIONS (1)
  - Amyloid related imaging abnormality-oedema/effusion [None]

NARRATIVE: CASE EVENT DATE: 20250610
